FAERS Safety Report 5749588-9 (Version None)
Quarter: 2008Q2

REPORT INFORMATION
  Report Type: 
  Country: None (occurrence: None)
  Receive Date: 20080527
  Receipt Date: 20080519
  Transmission Date: 20081010
  Serious: Yes (Death)
  Sender: FDA-Public Use
  Company Number: JP-ASTRAZENECA-2008SE02593

PATIENT
  Age: 73 Year
  Sex: Male
  Weight: 65 kg

DRUGS (6)
  1. BLOPRESS [Suspect]
     Indication: CARDIAC FAILURE CHRONIC
     Route: 048
     Dates: start: 20070511, end: 20071219
  2. NITOROL R [Concomitant]
     Indication: CARDIAC FAILURE CHRONIC
     Route: 048
     Dates: end: 20071225
  3. ARTIST [Concomitant]
     Indication: CARDIAC FAILURE CHRONIC
     Route: 048
     Dates: start: 20010312, end: 20071225
  4. EUGLUCON [Concomitant]
     Indication: DIABETES MELLITUS
     Route: 048
     Dates: start: 20010312, end: 20071225
  5. WARFARIN SODIUM [Concomitant]
     Indication: ATRIAL FIBRILLATION
     Route: 048
     Dates: start: 20010312, end: 20071225
  6. MUCODYNE [Concomitant]
     Indication: BRONCHITIS CHRONIC
     Route: 048
     Dates: start: 20060208, end: 20071225

REACTIONS (1)
  - SUDDEN DEATH [None]
